FAERS Safety Report 18552099 (Version 6)
Quarter: 2021Q2

REPORT INFORMATION
  Report Type: Report from Study
  Country: None (occurrence: ES)
  Receive Date: 20201126
  Receipt Date: 20210603
  Transmission Date: 20210717
  Serious: Yes (Hospitalization)
  Sender: FDA-Public Use
  Company Number: ES-ABBVIE-20K-144-3663417-00

PATIENT
  Age: 64 Year
  Sex: Male

DRUGS (7)
  1. DUODOPA [Suspect]
     Active Substance: CARBIDOPA\LEVODOPA
     Dosage: MORNING DOSE OF 7ML, CONTINUOUS DOSE ADJUSTED TO + 0.2 ML
     Route: 050
     Dates: start: 2021
  2. DUODOPA [Suspect]
     Active Substance: CARBIDOPA\LEVODOPA
     Dosage: DOSE DECREASED
     Route: 050
     Dates: start: 20201104, end: 20201123
  3. DUODOPA [Suspect]
     Active Substance: CARBIDOPA\LEVODOPA
     Dosage: MORNING DOSE 9 ML, CONTINUOUS DOSE 1.7 ML/H
     Route: 050
     Dates: start: 20210216, end: 20210226
  4. DUODOPA [Suspect]
     Active Substance: CARBIDOPA\LEVODOPA
     Dosage: MD 6 ML, CD 1.2 ML/H, ED 2 ML
     Route: 050
     Dates: start: 20201123, end: 20210216
  5. DUODOPA [Suspect]
     Active Substance: CARBIDOPA\LEVODOPA
     Dosage: MORNING DOSE 9ML, CONTINUOUS DOSE 2ML, EXTRA DOSE 2ML
     Route: 050
     Dates: start: 20210226, end: 202103
  6. DUODOPA [Suspect]
     Active Substance: CARBIDOPA\LEVODOPA
     Dosage: MORNING DOSE 8.2 ML, CONTINUOUS DOSE 2.2ML
     Route: 050
     Dates: start: 202103, end: 2021
  7. DUODOPA [Suspect]
     Active Substance: CARBIDOPA\LEVODOPA
     Indication: PARKINSON^S DISEASE
     Route: 050
     Dates: start: 20200228, end: 20201104

REACTIONS (5)
  - Salivary hypersecretion [Not Recovered/Not Resolved]
  - Therapeutic product effect incomplete [Unknown]
  - On and off phenomenon [Recovering/Resolving]
  - Balance disorder [Recovering/Resolving]
  - Hip fracture [Recovering/Resolving]

NARRATIVE: CASE EVENT DATE: 20201102
